FAERS Safety Report 5598834-3 (Version None)
Quarter: 2008Q1

REPORT INFORMATION
  Report Type: 
  Country: None (occurrence: None)
  Receive Date: 20080122
  Receipt Date: 20080111
  Transmission Date: 20080703
  Serious: Yes (Hospitalization, Other)
  Sender: FDA-Public Use
  Company Number: US-BRISTOL-MYERS SQUIBB COMPANY-14039796

PATIENT
  Age: 65 Year
  Sex: Male
  Weight: 78 kg

DRUGS (2)
  1. ERBITUX [Suspect]
     Indication: SQUAMOUS CELL CARCINOMA
     Dosage: LAST ADMINISTERED DATE=24/12/2007
     Dates: start: 20071224
  2. RADIATION THERAPY [Suspect]
     Indication: SQUAMOUS CELL CARCINOMA
     Dosage: 1 DOSAGE FORM=5200CGY;26 FRACTIONS
     Dates: start: 20071226

REACTIONS (10)
  - CONSTIPATION [None]
  - DIARRHOEA [None]
  - FATIGUE [None]
  - HYPOMAGNESAEMIA [None]
  - HYPONATRAEMIA [None]
  - LYMPHOPENIA [None]
  - PLATELET DISORDER [None]
  - STOMATITIS [None]
  - VOMITING [None]
  - WHITE BLOOD CELL DISORDER [None]
